FAERS Safety Report 4747062-X (Version None)
Quarter: 2005Q3

REPORT INFORMATION
  Report Type: 
  Country: None (occurrence: None)
  Receive Date: 20050815
  Receipt Date: 20050802
  Transmission Date: 20060218
  Serious: Yes (Hospitalization, Other)
  Sender: FDA-Public Use
  Company Number: HQWYE398718FEB05

PATIENT
  Age: 48 Year
  Sex: Male
  Weight: 78 kg

DRUGS (6)
  1. RAPAMUNE [Suspect]
     Indication: PROPHYLAXIS AGAINST TRANSPLANT REJECTION
     Dosage: 5 MG 1X PER 1 DAY, ORAL
     Route: 048
     Dates: start: 20050126
  2. TACROLIMUS (TACROLIMUS, ) [Suspect]
     Dosage: 2.5 MG 1X PER 1 DAY
  3. CORTICOSTEROID NOS (CORTICOSTEROID NOS) [Concomitant]
  4. CALCIUM CARBONATE (CALCIUM CARBONATE) [Concomitant]
  5. CLOTRIMAZOLE (CLOTRIMAZOLE) [Concomitant]
  6. FAMOTIDINE [Concomitant]

REACTIONS (3)
  - BLOOD CREATINE INCREASED [None]
  - BLOOD UREA INCREASED [None]
  - HYDRONEPHROSIS [None]
